FAERS Safety Report 25603215 (Version 2)
Quarter: 2025Q3

REPORT INFORMATION
  Report Type: Spontaneous
  Country: EU (occurrence: EU)
  Receive Date: 20250724
  Receipt Date: 20250731
  Transmission Date: 20251021
  Serious: Yes (Life-Threatening, Other)
  Sender: PFIZER
  Company Number: EU-PFIZER INC-PV202500088099

PATIENT
  Age: 36 Week
  Sex: Female

DRUGS (4)
  1. DEXMEDETOMIDINE HYDROCHLORIDE [Suspect]
     Active Substance: DEXMEDETOMIDINE HYDROCHLORIDE
  2. CAFFEINE [Suspect]
     Active Substance: CAFFEINE
     Indication: Apnoea
  3. IRON [Concomitant]
     Active Substance: IRON
  4. VITAMIN D NOS [Concomitant]
     Active Substance: CHOLECALCIFEROL\ERGOCALCIFEROL

REACTIONS (14)
  - Wrong product administered [Recovered/Resolved]
  - Product appearance confusion [Recovered/Resolved]
  - Accidental overdose [Recovered/Resolved]
  - Infant irritability [Recovered/Resolved]
  - Neurological examination abnormal [Recovered/Resolved]
  - Hypotonia [Recovered/Resolved]
  - Irregular breathing [Recovered/Resolved]
  - Dyspnoea [Recovered/Resolved]
  - Heart rate variability decreased [Recovered/Resolved]
  - Hypocapnia [Recovered/Resolved]
  - Blood lactic acid increased [Recovered/Resolved]
  - Hyperglycaemia [Recovered/Resolved]
  - Cerebral disorder [Recovered/Resolved]
  - Respiratory rate decreased [Recovered/Resolved]
